FAERS Safety Report 4964808-6 (Version None)
Quarter: 2006Q2

REPORT INFORMATION
  Report Type: 
  Country: None (occurrence: None)
  Receive Date: 20060403
  Receipt Date: 20060317
  Transmission Date: 20061013
  Serious: Yes (Disabling)
  Sender: FDA-Public Use
  Company Number: 34324

PATIENT
  Age: 63 Year
  Sex: Male

DRUGS (1)
  1. TIMOLOL MALEATE [Suspect]
     Indication: GLAUCOMA
     Route: 047
     Dates: start: 20060311

REACTIONS (13)
  - CONJUNCTIVAL DISORDER [None]
  - CORNEAL DISORDER [None]
  - CORNEAL OEDEMA [None]
  - CORNEAL OPACITY [None]
  - CORNEAL SCAR [None]
  - EYE DISORDER [None]
  - EYE IRRITATION [None]
  - EYE PAIN [None]
  - EYE PRURITUS [None]
  - KERATITIS [None]
  - OCULAR HYPERAEMIA [None]
  - TREATMENT NONCOMPLIANCE [None]
  - VISUAL ACUITY REDUCED [None]
